FAERS Safety Report 9071972 (Version 1)
Quarter: 2013Q1

REPORT INFORMATION
  Report Type: Report from Study
  Country: US (occurrence: US)
  Receive Date: 20130129
  Receipt Date: 20130129
  Transmission Date: 20140127
  Serious: No
  Sender: FDA-Public Use
  Company Number: US-ABBOTT-12P-163-0932343-00

PATIENT
  Age: 63 Year
  Sex: Female

DRUGS (6)
  1. HUMIRA 40 MG/0.8 ML PEN [Suspect]
     Indication: CROHN^S DISEASE
     Dates: start: 20120317
  2. VASOTEC [Concomitant]
     Indication: HYPERTENSION
  3. AZILECT [Concomitant]
     Indication: PARKINSON^S DISEASE
  4. MIROPLEX [Concomitant]
     Indication: PARKINSON^S DISEASE
  5. UNKNOWN MEDICATION [Concomitant]
     Indication: PARKINSON^S DISEASE
  6. ANTIDEPRESSANTS [Concomitant]
     Indication: PRODUCT USED FOR UNKNOWN INDICATION

REACTIONS (3)
  - Defaecation urgency [Not Recovered/Not Resolved]
  - Crohn^s disease [Not Recovered/Not Resolved]
  - Diarrhoea [Not Recovered/Not Resolved]
